FAERS Safety Report 8174061-0 (Version None)
Quarter: 2012Q1

REPORT INFORMATION
  Report Type: 
  Country: None (occurrence: None)
  Receive Date: 20120229
  Receipt Date: 20120222
  Transmission Date: 20120608
  Serious: Yes (Life-Threatening)
  Sender: FDA-Public Use
  Company Number: FR-ROCHE-1042545

PATIENT
  Age: 51 Year
  Sex: Male

DRUGS (8)
  1. ROVAMYCIN [Concomitant]
     Dates: start: 20111220, end: 20111229
  2. DORIBAX [Suspect]
     Indication: LUNG DISORDER
     Route: 042
     Dates: start: 20111226, end: 20120107
  3. LOVENOX [Concomitant]
  4. CEFTRIAXONE [Concomitant]
     Dates: start: 20111215, end: 20120105
  5. BRICANYL [Concomitant]
  6. PANTOPRAZOLE [Concomitant]
  7. VALIUM [Suspect]
     Indication: AGITATION
     Dates: start: 20111219, end: 20120107
  8. LASIX [Concomitant]

REACTIONS (2)
  - EPILEPSY [None]
  - SHOCK [None]
